FAERS Safety Report 4897391-4 (Version None)
Quarter: 2006Q2

REPORT INFORMATION
  Report Type: 
  Country: None (occurrence: None)
  Receive Date: 20060130
  Receipt Date: 20060130
  Transmission Date: 20061013
  Serious: Yes (Other)
  Sender: FDA-Public Use
  Company Number: None

PATIENT
  Age: 21 Year
  Weight: 49.8957 kg

DRUGS (1)
  1. LAMICTAL [Suspect]
     Indication: EPILEPSY
     Dosage: 600MG A DAY
     Dates: start: 20050501, end: 20060125

REACTIONS (4)
  - DRUG LEVEL DECREASED [None]
  - GINGIVAL ATROPHY [None]
  - GINGIVAL BLEEDING [None]
  - GINGIVAL DISORDER [None]
